FAERS Safety Report 7250073-6 (Version None)
Quarter: 2011Q1

REPORT INFORMATION
  Report Type: 
  Country: None (occurrence: None)
  Receive Date: 20110128
  Receipt Date: 20101217
  Transmission Date: 20110831
  Serious: Yes (Other)
  Sender: FDA-Public Use
  Company Number: US-BAYER-201020085NA

PATIENT
  Sex: Female
  Weight: 81.633 kg

DRUGS (19)
  1. HERBAL PREPARATION [Concomitant]
  2. YAZ [Suspect]
     Dosage: UNK
     Dates: end: 20090528
  3. CHLORHEXIDINE [CHLORHEXIDINE] [Concomitant]
     Indication: TOOTH EXTRACTION
     Dosage: UNK
     Dates: start: 20060801
  4. UNCODEABLE ^UNCLASSIFIABLE^ [Concomitant]
  5. OXYCOD [Concomitant]
     Indication: PROCEDURAL PAIN
     Dosage: 325 MG, UNK
     Dates: start: 20060801
  6. DOVONEX [Concomitant]
     Dosage: UNK
     Dates: start: 20071201, end: 20080101
  7. ASCORBIC ACID [Concomitant]
  8. UNCODEABLE ^UNCLASSIFIABLE^ [Concomitant]
  9. YAZ [Suspect]
     Indication: DYSMENORRHOEA
     Dosage: UNK
     Route: 048
     Dates: start: 20060601, end: 20080304
  10. FLUOCINONIDE [Concomitant]
     Indication: PSORIASIS
     Dosage: UNK
     Dates: start: 20040701
  11. METFORMIN [Concomitant]
     Indication: BLOOD GLUCOSE ABNORMAL
     Dosage: 500 MG, UNK
     Dates: start: 20060628, end: 20070801
  12. CEPHALEXIN [Concomitant]
     Indication: TOOTH EXTRACTION
     Dosage: 500 MG, UNK
     Dates: start: 20060801
  13. ALAVERT [Concomitant]
     Indication: MIGRAINE
  14. UNCODEABLE ^UNCLASSIFIABLE^ [Concomitant]
  15. UNCODEABLE ^UNCLASSIFIABLE^ [Concomitant]
  16. EXCEDRIN (MIGRAINE) [Concomitant]
     Indication: MIGRAINE
  17. ZANTAC [Concomitant]
     Indication: ABDOMINAL PAIN UPPER
     Dosage: UNK UNK, QD
     Dates: start: 20070117, end: 20070601
  18. CLOBETASOL [Concomitant]
     Indication: PSORIASIS
     Dosage: UNK
     Dates: start: 20080101, end: 20080801
  19. ADVIL [Concomitant]
     Indication: MIGRAINE

REACTIONS (12)
  - NAUSEA [None]
  - DECREASED APPETITE [None]
  - DIARRHOEA [None]
  - CHOLELITHIASIS [None]
  - BENIGN LYMPH NODE NEOPLASM [None]
  - VOMITING [None]
  - CHOLECYSTITIS CHRONIC [None]
  - ABDOMINAL PAIN UPPER [None]
  - BILIARY COLIC [None]
  - EPIGASTRIC DISCOMFORT [None]
  - ABDOMINAL DISTENSION [None]
  - FLATULENCE [None]
